FAERS Safety Report 8238699-4 (Version None)
Quarter: 2012Q1

REPORT INFORMATION
  Report Type: 
  Country: None (occurrence: None)
  Receive Date: 20120327
  Receipt Date: 20120323
  Transmission Date: 20120608
  Serious: Yes (Hospitalization, Other)
  Sender: FDA-Public Use
  Company Number: JP-PFIZER INC-2012076577

PATIENT

DRUGS (2)
  1. CADUET [Suspect]
     Route: 048
  2. JANUVIA [Suspect]
     Route: 048

REACTIONS (1)
  - OCULOMUCOCUTANEOUS SYNDROME [None]
